FAERS Safety Report 9792714 (Version 1)
Quarter: 2014Q1

REPORT INFORMATION
  Report Type: Spontaneous
  Country: FR (occurrence: FR)
  Receive Date: 20140102
  Receipt Date: 20140102
  Transmission Date: 20141002
  Serious: Yes (Hospitalization)
  Sender: FDA-Public Use
  Company Number: FR-ABBVIE-13P-056-1183612-00

PATIENT
  Age: 32 Year
  Sex: Male

DRUGS (4)
  1. KALETRA TABLETS 200/50 [Suspect]
     Indication: ANTIRETROVIRAL THERAPY
     Dates: start: 20131116
  2. KALETRA TABLETS 200/50 [Suspect]
     Indication: PROPHYLAXIS AGAINST HIV INFECTION
  3. TRUVADA [Suspect]
     Indication: ANTIRETROVIRAL THERAPY
     Dosage: 200 MG / 245 MG
     Dates: start: 20131116
  4. TRUVADA [Suspect]
     Indication: PROPHYLAXIS AGAINST HIV INFECTION

REACTIONS (3)
  - Neuritis cranial [Not Recovered/Not Resolved]
  - Headache [Recovered/Resolved]
  - Hypoaesthesia [Recovered/Resolved with Sequelae]
